FAERS Safety Report 22159689 (Version 2)
Quarter: 2024Q4

REPORT INFORMATION
  Report Type: Spontaneous
  Country: US (occurrence: US)
  Receive Date: 20230331
  Receipt Date: 20241009
  Transmission Date: 20250114
  Serious: No
  Sender: NOVARTIS
  Company Number: US-002147023-NVSC2023US075000

PATIENT
  Sex: Female

DRUGS (1)
  1. PROMACTA [Suspect]
     Active Substance: ELTROMBOPAG OLAMINE
     Indication: Henoch-Schonlein purpura
     Dosage: 50 MG, QD (BY MOUTH)
     Route: 048
     Dates: start: 202206

REACTIONS (4)
  - Anxiety [Unknown]
  - Asthenia [Unknown]
  - Pigmentation disorder [Unknown]
  - Product dose omission issue [Unknown]
